APPROVED DRUG PRODUCT: THALITONE
Active Ingredient: CHLORTHALIDONE
Strength: 15MG **Federal Register determination that product was not discontinued or withdrawn for safety or effectiveness reasons**
Dosage Form/Route: TABLET;ORAL
Application: N019574 | Product #001
Applicant: CASPER PHARMA LLC
Approved: Dec 20, 1988 | RLD: Yes | RS: No | Type: RX